FAERS Safety Report 16923372 (Version 2)
Quarter: 2020Q2

REPORT INFORMATION
  Report Type: Report from Study
  Country: None (occurrence: US)
  Receive Date: 20191016
  Receipt Date: 20200428
  Transmission Date: 20200713
  Serious: Yes (Other)
  Sender: FDA-Public Use
  Company Number: US-ABBVIE-19K-163-2960458-00

PATIENT
  Age: 51 Year
  Sex: Female

DRUGS (3)
  1. HUMIRA [Suspect]
     Active Substance: ADALIMUMAB
     Route: 058
     Dates: start: 201907, end: 201909
  2. HUMIRA [Suspect]
     Active Substance: ADALIMUMAB
     Route: 058
     Dates: start: 2019
  3. HUMIRA [Suspect]
     Active Substance: ADALIMUMAB
     Indication: ANKYLOSING SPONDYLITIS
     Route: 058

REACTIONS (13)
  - Dysphemia [Unknown]
  - Memory impairment [Unknown]
  - Ankylosing spondylitis [Unknown]
  - Arthralgia [Unknown]
  - Joint effusion [Unknown]
  - Limb operation [Unknown]
  - Shoulder operation [Recovering/Resolving]
  - Degenerative bone disease [Unknown]
  - Shoulder operation [Unknown]
  - Wrist surgery [Unknown]
  - Loose tooth [Unknown]
  - Mammogram abnormal [Unknown]
  - Breast mass [Unknown]

NARRATIVE: CASE EVENT DATE: 2017
